FAERS Safety Report 8773231 (Version 1)
Quarter: 2012Q4

REPORT INFORMATION
  Report Type: 
  Country: US (occurrence: US)
  Receive Date: 20120907
  Receipt Date: 20120907
  Transmission Date: 20130627
  Serious: Yes (Hospitalization)
  Sender: FDA-Public Use
  Company Number: US-JNJFOC-20120900687

PATIENT
  Age: 50 None
  Sex: Male
  Weight: 88 kg

DRUGS (2)
  1. PREZISTA [Suspect]
     Indication: HIV INFECTION
     Route: 048
     Dates: start: 2006, end: 201208
  2. PREZISTA [Suspect]
     Indication: ACQUIRED IMMUNODEFICIENCY SYNDROME
     Route: 048
     Dates: start: 2006, end: 201208

REACTIONS (4)
  - Pelvic fracture [Recovering/Resolving]
  - Fall [Recovered/Resolved]
  - Joint dislocation [Recovering/Resolving]
  - Adverse event [Recovered/Resolved]
